FAERS Safety Report 8907089 (Version 1)
Quarter: 2012Q4

REPORT INFORMATION
  Report Type: 
  Country: US (occurrence: US)
  Receive Date: 20121114
  Receipt Date: 20121114
  Transmission Date: 20130627
  Serious: No
  Sender: FDA-Public Use
  Company Number: US-GLAXOSMITHKLINE-A0991597A

PATIENT
  Age: 30 Year
  Sex: Female

DRUGS (2)
  1. VELTIN [Suspect]
     Indication: ACNE
     Dosage: 1APP Variable dose
     Route: 061
     Dates: start: 20120816
  2. NO CONCURRENT MEDICATION [Concomitant]

REACTIONS (3)
  - Erythema [Not Recovered/Not Resolved]
  - Dry skin [Unknown]
  - Skin exfoliation [Unknown]
